FAERS Safety Report 14751097 (Version 1)
Quarter: 2018Q2

REPORT INFORMATION
  Report Type: Spontaneous
  Country: MX (occurrence: MX)
  Receive Date: 20180412
  Receipt Date: 20180412
  Transmission Date: 20180711
  Serious: Yes (Other)
  Sender: FDA-Public Use
  Company Number: MX-BAYER-2018-067416

PATIENT
  Sex: Female

DRUGS (1)
  1. ASPIRINA 500 MG [Suspect]
     Active Substance: ASPIRIN
     Dosage: UNK

REACTIONS (2)
  - Tachycardia [None]
  - Vasodilatation [None]
